FAERS Safety Report 5736619-5 (Version None)
Quarter: 2008Q2

REPORT INFORMATION
  Report Type: 
  Country: None (occurrence: None)
  Receive Date: 20080513
  Receipt Date: 20080507
  Transmission Date: 20081010
  Serious: Yes (Other)
  Sender: FDA-Public Use
  Company Number: US-ASTRAZENECA-2008UW09371

PATIENT
  Age: 47 Year
  Sex: Male
  Weight: 176 kg

DRUGS (1)
  1. NEXIUM [Suspect]
     Indication: GASTRINOMA
     Route: 048
     Dates: start: 20040101

REACTIONS (2)
  - CONVULSION [None]
  - DIARRHOEA [None]
